FAERS Safety Report 8109063-3 (Version None)
Quarter: 2012Q1

REPORT INFORMATION
  Report Type: 
  Country: None (occurrence: None)
  Receive Date: 20120202
  Receipt Date: 20120130
  Transmission Date: 20120608
  Serious: Yes (Other)
  Sender: FDA-Public Use
  Company Number: VE-ABBOTT-12P-178-0892729-00

PATIENT
  Sex: Female
  Weight: 56 kg

DRUGS (2)
  1. HUMIRA [Suspect]
     Indication: RHEUMATOID ARTHRITIS
     Route: 058
     Dates: start: 20090601
  2. HUMIRA [Suspect]
     Dates: start: 20120130

REACTIONS (3)
  - COUGH [None]
  - TUBERCULIN TEST POSITIVE [None]
  - INFLUENZA LIKE ILLNESS [None]
